FAERS Safety Report 4292583-X (Version None)
Quarter: 2004Q1

REPORT INFORMATION
  Report Type: 
  Country: None (occurrence: None)
  Receive Date: 20040126
  Receipt Date: 20031111
  Transmission Date: 20041129
  Serious: No
  Sender: FDA-Public Use
  Company Number: USA031152363

PATIENT
  Age: 68 Year
  Sex: Female

DRUGS (2)
  1. FORTEO [Suspect]
     Indication: OSTEOPOROSIS
     Dosage: 20 UG
     Dates: start: 20030201
  2. LIPITOR [Concomitant]

REACTIONS (4)
  - BURNING SENSATION [None]
  - PAIN [None]
  - PRURITUS [None]
  - RASH [None]
